FAERS Safety Report 9807688 (Version 1)
Quarter: 2014Q1

REPORT INFORMATION
  Report Type: Spontaneous
  Country: US (occurrence: US)
  Receive Date: 20140110
  Receipt Date: 20140110
  Transmission Date: 20141002
  Serious: Yes (Death, Other)
  Sender: FDA-Public Use
  Company Number: US-UCBSA-108211

PATIENT
  Age: 26 Year
  Sex: Female

DRUGS (2)
  1. ALPRAZOLAM [Suspect]
     Dosage: INGESTION
     Route: 048
  2. ASPIRIN [Suspect]
     Dosage: INGESTION
     Route: 048

REACTIONS (8)
  - Toxicity to various agents [Fatal]
  - Completed suicide [Fatal]
  - Pulmonary congestion [Unknown]
  - Cardiac arrest [Unknown]
  - Mental status changes [Unknown]
  - Agitation [Unknown]
  - Hypotension [Unknown]
  - Pregnancy [Recovered/Resolved]
